APPROVED DRUG PRODUCT: PERIOGARD
Active Ingredient: CHLORHEXIDINE GLUCONATE
Strength: 0.12%
Dosage Form/Route: SOLUTION;DENTAL
Application: A073695 | Product #001
Applicant: COLGATE PALMOLIVE CO
Approved: Jan 14, 1994 | RLD: No | RS: No | Type: DISCN